FAERS Safety Report 7083341-1 (Version None)
Quarter: 2010Q4

REPORT INFORMATION
  Report Type: 
  Country: None (occurrence: None)
  Receive Date: 20101104
  Receipt Date: 20101101
  Transmission Date: 20110411
  Serious: Yes (Death, Hospitalization)
  Sender: FDA-Public Use
  Company Number: PHBS2009US01054

PATIENT
  Sex: Male

DRUGS (2)
  1. EXJADE [Suspect]
     Indication: MYELODYSPLASTIC SYNDROME
     Dosage: 500 MG, QD
     Route: 048
     Dates: end: 20090423
  2. EXJADE [Suspect]
     Dosage: 500 MG, QD
     Route: 048
     Dates: start: 20090511

REACTIONS (5)
  - CARDIAC DISORDER [None]
  - MULTIPLE MYELOMA [None]
  - MYELODYSPLASTIC SYNDROME [None]
  - PNEUMONIA [None]
  - PYREXIA [None]
